FAERS Safety Report 16107327 (Version 2)
Quarter: 2020Q3

REPORT INFORMATION
  Report Type: Spontaneous
  Country: US (occurrence: US)
  Receive Date: 20190322
  Receipt Date: 20200731
  Transmission Date: 20201102
  Serious: No
  Sender: FDA-Public Use
  Company Number: US-SA-2019SA079694

PATIENT

DRUGS (3)
  1. PENICILLIN [PENICILLIN NOS] [Concomitant]
     Active Substance: PENICILLIN
     Dosage: UNK
     Route: 065
  2. DUPIXENT [Suspect]
     Active Substance: DUPILUMAB
     Indication: ASTHMA
     Dosage: 300 MG, QOW
     Route: 058
     Dates: start: 20190104
  3. PEN?G [Concomitant]
     Active Substance: PENICILLIN G
     Dosage: UNK
     Route: 065

REACTIONS (3)
  - Drug eruption [Unknown]
  - Injection site reaction [Not Recovered/Not Resolved]
  - Eczema [Unknown]
